FAERS Safety Report 4704606-1 (Version None)
Quarter: 2005Q2

REPORT INFORMATION
  Report Type: 
  Country: None (occurrence: None)
  Receive Date: 20050629
  Receipt Date: 20050615
  Transmission Date: 20051028
  Serious: No
  Sender: FDA-Public Use
  Company Number: 05H-114-0300450-00

PATIENT
  Age: 42 Year
  Sex: Male

DRUGS (1)
  1. LIDOCAINE HYDROCHLORIDE [Suspect]
     Indication: ANAESTHESIA
     Dosage: 4 ML SPINAL

REACTIONS (2)
  - DISTURBANCE IN ATTENTION [None]
  - MENINGITIS PNEUMOCOCCAL [None]
